FAERS Safety Report 9661622 (Version 2)
Quarter: 2013Q4

REPORT INFORMATION
  Report Type: Spontaneous
  Country: US (occurrence: US)
  Receive Date: 20131031
  Receipt Date: 20131031
  Transmission Date: 20140711
  Serious: No
  Sender: FDA-Public Use
  Company Number: US-PURDUE-USA-2010-0054691

PATIENT
  Age: 31 Year
  Sex: Male

DRUGS (1)
  1. OXYCONTIN (NDA 22-272) [Suspect]
     Indication: BACK PAIN
     Dosage: 160 MG, BID
     Route: 048
     Dates: start: 20100909

REACTIONS (9)
  - Drug withdrawal syndrome [Recovered/Resolved]
  - Influenza [Recovered/Resolved]
  - Pain [Unknown]
  - Nausea [Recovered/Resolved]
  - Cold sweat [Recovered/Resolved]
  - Diarrhoea [Recovered/Resolved]
  - Hyperhidrosis [Recovered/Resolved]
  - Drug ineffective [Not Recovered/Not Resolved]
  - Product tampering [Unknown]
